FAERS Safety Report 18495989 (Version 1)
Quarter: 2020Q4

REPORT INFORMATION
  Report Type: Spontaneous
  Country: US (occurrence: US)
  Receive Date: 20201111
  Receipt Date: 20201111
  Transmission Date: 20210114
  Serious: Yes (Other)
  Sender: FDA-Public Use
  Company Number: None

PATIENT
  Age: 52 Year
  Sex: Female

DRUGS (12)
  1. ATORVASTATIN [Concomitant]
     Active Substance: ATORVASTATIN
  2. IMDUR [Concomitant]
     Active Substance: ISOSORBIDE MONONITRATE
  3. REPATHA [Suspect]
     Active Substance: EVOLOCUMAB
     Indication: HYPERLIPIDAEMIA
     Dosage: QUANTITY:2 ML MILLILITRE(S);OTHER ROUTE:INJECTED UNDER THE SKIN?
     Dates: start: 20200530
  4. ASPIRIN. [Concomitant]
     Active Substance: ASPIRIN
  5. VENTOLIN [Concomitant]
     Active Substance: ALBUTEROL SULFATE
  6. CLONIDINE. [Concomitant]
     Active Substance: CLONIDINE
  7. ATENOLOL. [Concomitant]
     Active Substance: ATENOLOL
  8. OZEMPIC [Concomitant]
     Active Substance: SEMAGLUTIDE
  9. AMLODIPINE [Concomitant]
     Active Substance: AMLODIPINE BESYLATE
  10. GABAPENTIN. [Concomitant]
     Active Substance: GABAPENTIN
  11. PLAVIX [Concomitant]
     Active Substance: CLOPIDOGREL BISULFATE
  12. TOUJEO [Concomitant]
     Active Substance: INSULIN GLARGINE

REACTIONS (1)
  - Nausea [None]

NARRATIVE: CASE EVENT DATE: 20200530
